FAERS Safety Report 10408484 (Version 1)
Quarter: 2014Q3

REPORT INFORMATION
  Report Type: Spontaneous
  Country: US (occurrence: None)
  Receive Date: 20140822
  Receipt Date: 20140822
  Transmission Date: 20150326
  Serious: Yes (Other)
  Sender: FDA-Public Use
  Company Number: None

PATIENT
  Age: 61 Year
  Sex: Male
  Weight: 77.11 kg

DRUGS (1)
  1. PICATO [Suspect]
     Active Substance: INGENOL MEBUTATE
     Indication: PRECANCEROUS SKIN LESION
     Dosage: THREE DOSES, TWO CONTAINERS  ONCE DAILY APPLIED TO A SURFACE, USUALLY THE SKIN.
     Route: 061
     Dates: start: 20140815, end: 20140817

REACTIONS (3)
  - Scab [None]
  - Application site abscess [None]
  - Application site erythema [None]

NARRATIVE: CASE EVENT DATE: 20140817
